FAERS Safety Report 15294091 (Version 1)
Quarter: 2018Q3

REPORT INFORMATION
  Report Type: Spontaneous
  Country: US (occurrence: US)
  Receive Date: 20180807
  Receipt Date: 20180807
  Transmission Date: 20181010
  Serious: No
  Sender: FDA-Public Use
  Company Number: None

PATIENT
  Age: 47 Year
  Sex: Female
  Weight: 92 kg

DRUGS (4)
  1. LOTEPRED EYEDROPS [Concomitant]
  2. VITAMIN C [Concomitant]
     Active Substance: ASCORBIC ACID
  3. EUBRI EYE DROPS [Concomitant]
  4. RESTASIS [Suspect]
     Active Substance: CYCLOSPORINE
     Indication: DRY EYE
     Dosage: ?          QUANTITY:1 CAPSULE(S);?
     Route: 047
     Dates: start: 20180806, end: 20180807

REACTIONS (1)
  - Headache [None]

NARRATIVE: CASE EVENT DATE: 20180807
